FAERS Safety Report 14823711 (Version 3)
Quarter: 2018Q3

REPORT INFORMATION
  Report Type: Spontaneous
  Country: DE (occurrence: DE)
  Receive Date: 20180428
  Receipt Date: 20180928
  Transmission Date: 20181010
  Serious: Yes (Hospitalization, Other)
  Sender: FDA-Public Use
  Company Number: GB-AUROBINDO-AUR-APL-2018-022809

PATIENT
  Age: 79 Year
  Sex: Female
  Weight: 67 kg

DRUGS (35)
  1. DIAZEPAM. [Suspect]
     Active Substance: DIAZEPAM
     Dosage: 5 MILLIGRAM
     Route: 042
     Dates: start: 20000218, end: 20000218
  2. DIAZEPAM. [Suspect]
     Active Substance: DIAZEPAM
     Dosage: 5 MILLIGRAM
     Route: 042
     Dates: start: 20000220, end: 20000220
  3. ISMO [Suspect]
     Active Substance: ISOSORBIDE MONONITRATE
     Indication: CORONARY ARTERY DISEASE
     Dosage: UNK
     Route: 048
     Dates: start: 20000225
  4. TRAMAL [Suspect]
     Active Substance: TRAMADOL
     Dosage: UNK
     Route: 048
     Dates: start: 20000219, end: 20000223
  5. FURORESE                           /00032601/ [Suspect]
     Active Substance: FUROSEMIDE
     Indication: OEDEMA
     Dosage: UNK
     Route: 048
     Dates: start: 20000218, end: 20000224
  6. ZANTAC [Suspect]
     Active Substance: RANITIDINE HYDROCHLORIDE
     Indication: GASTRIC ULCER
     Dosage: UNK
     Route: 048
     Dates: start: 20000225
  7. TRAMAL [Suspect]
     Active Substance: TRAMADOL
     Dosage: DOSE UNIT: 20 DROP
     Route: 048
     Dates: start: 20000221, end: 20000221
  8. DIAZEPAM. [Suspect]
     Active Substance: DIAZEPAM
     Indication: SEIZURE
     Dosage: 5 MILLIGRAM
     Route: 042
     Dates: start: 20000225, end: 20000225
  9. ISMO [Suspect]
     Active Substance: ISOSORBIDE MONONITRATE
     Dosage: UNK
     Route: 048
     Dates: start: 20000225, end: 20000227
  10. BEN?U?RON [Concomitant]
     Active Substance: ACETAMINOPHEN
     Indication: PAIN
     Dosage: 1 DOSAGE FORM
     Route: 054
     Dates: start: 20000226, end: 20000226
  11. DIAZEPAM. [Suspect]
     Active Substance: DIAZEPAM
     Dosage: 5 MILLIGRAM
     Route: 042
     Dates: start: 20000218, end: 20000225
  12. RANITIC [Suspect]
     Active Substance: RANITIDINE HYDROCHLORIDE
     Indication: PROPHYLAXIS
     Dosage: 300 MG (DAILY DOSE), , ORAL
     Route: 048
     Dates: start: 20000218, end: 20000224
  13. RIVOTRIL [Suspect]
     Active Substance: CLONAZEPAM
     Dosage: 1 MILLIGRAM
     Route: 042
     Dates: start: 20000224, end: 20000224
  14. PHENOBARBITAL. [Suspect]
     Active Substance: PHENOBARBITAL
     Indication: SEIZURE
     Dosage: UNK
     Route: 030
     Dates: start: 20000225
  15. AMLODIPINE [Suspect]
     Active Substance: AMLODIPINE BESYLATE
     Dosage: 5 MG (DAILY DOSE), , ORAL
     Route: 048
     Dates: start: 20000130, end: 20000220
  16. RIVOTRIL [Suspect]
     Active Substance: CLONAZEPAM
     Indication: SEIZURE
     Dosage: 1 MILLIGRAM, ONCE A DAY
     Route: 042
     Dates: start: 20000224
  17. LASIX [Suspect]
     Active Substance: FUROSEMIDE
     Indication: CORONARY ARTERY DISEASE
     Dosage: 40 MILLIGRAM, ONCE A DAY
     Route: 048
     Dates: start: 20000225
  18. TRAMAL [Suspect]
     Active Substance: TRAMADOL
     Indication: PAIN
     Dosage: UNK
     Route: 048
     Dates: start: 20000219
  19. TRAMAL [Suspect]
     Active Substance: TRAMADOL
     Dosage: DOSE UNIT: 20 DROP
     Route: 048
     Dates: start: 20000223, end: 20000223
  20. TEGRETAL [Suspect]
     Active Substance: CARBAMAZEPINE
     Dosage: 600 MG (DAILY DOSE), , ORAL
     Route: 048
     Dates: start: 20000125, end: 20000224
  21. ZANTAC [Suspect]
     Active Substance: RANITIDINE HYDROCHLORIDE
     Indication: PROPHYLAXIS
     Dosage: UNK
     Route: 048
     Dates: start: 20000225, end: 20000227
  22. PHENHYDAN                          /00017401/ [Suspect]
     Active Substance: PHENYTOIN
     Indication: SEIZURE
     Dosage: UNK
     Route: 042
     Dates: start: 20000225, end: 20000226
  23. CORANGIN [Suspect]
     Active Substance: ISOSORBIDE MONONITRATE
     Indication: CORONARY ARTERY DISEASE
     Dosage: 1 DF (DAILY DOSE), , ORAL
     Route: 048
     Dates: start: 20000218, end: 20000224
  24. ISOSORBIDE DINITRATE. [Suspect]
     Active Substance: ISOSORBIDE DINITRATE
     Dosage: 1 DF (DAILY DOSE), , ORAL
     Route: 048
     Dates: start: 20000130, end: 20000218
  25. SULFAMETHOXAZOLE AND TRIMETHOPRIM [Suspect]
     Active Substance: SULFAMETHOXAZOLE\TRIMETHOPRIM
     Indication: CYSTITIS
     Dosage: 2 DF (DAILY DOSE), , ORAL
     Route: 048
     Dates: start: 20000226
  26. ASPIRIN TABLETS [Suspect]
     Active Substance: ASPIRIN
     Indication: CORONARY ARTERY DISEASE
     Dosage: 100 MG (DAILY DOSE), , ORAL
     Route: 048
  27. DIAZEPAM. [Suspect]
     Active Substance: DIAZEPAM
     Indication: SEIZURE
     Dosage: 5 MILLIGRAM, ONCE A DAY
     Route: 042
     Dates: start: 20000218
  28. FUROSEMID                          /00032601/ [Suspect]
     Active Substance: FUROSEMIDE
     Indication: OEDEMA
     Dosage: 40 MG (DAILY DOSE), , ORAL
     Route: 048
     Dates: end: 20000218
  29. AMLODIPINE [Suspect]
     Active Substance: AMLODIPINE BESYLATE
     Indication: CORONARY ARTERY DISEASE
     Dosage: 5 MG (DAILY DOSE), , ORAL
     Route: 048
  30. RANITIC [Suspect]
     Active Substance: RANITIDINE HYDROCHLORIDE
     Indication: GASTRIC ULCER
     Dosage: 300 MG (DAILY DOSE), , ORAL
     Route: 048
     Dates: start: 20000218
  31. TRAMAL [Suspect]
     Active Substance: TRAMADOL
     Dosage: DOSE UNIT: 20 DROP  EAR EYE NOSE DROP SOLUTION ()
     Route: 048
     Dates: start: 20000218, end: 20000218
  32. PHENHYDAN                          /00017401/ [Suspect]
     Active Substance: PHENYTOIN
     Dosage: UNK
     Route: 048
     Dates: start: 20000226, end: 20000227
  33. ISOSORBIDE DINITRATE. [Suspect]
     Active Substance: ISOSORBIDE DINITRATE
     Indication: CORONARY ARTERY DISEASE
     Dosage: 1 DF (DAILY DOSE), , ORAL
     Route: 048
  34. TEGRETAL [Suspect]
     Active Substance: CARBAMAZEPINE
     Indication: SEIZURE
     Dosage: 600 MG (DAILY DOSE), , ORAL
     Route: 048
     Dates: start: 20000125
  35. NORVASC [Concomitant]
     Active Substance: AMLODIPINE BESYLATE
     Indication: CORONARY ARTERY DISEASE
     Dosage: UNK
     Route: 048
     Dates: start: 20000130, end: 20000227

REACTIONS (13)
  - Pruritus [Recovered/Resolved]
  - Genital erosion [Recovered/Resolved]
  - Lip erosion [Recovered/Resolved]
  - Rash erythematous [Recovered/Resolved]
  - Stevens-Johnson syndrome [Recovered/Resolved]
  - Mouth ulceration [Recovered/Resolved]
  - Rash macular [Recovered/Resolved]
  - Blister [Recovered/Resolved]
  - Eyelid oedema [Recovered/Resolved]
  - Conjunctivitis [Recovered/Resolved]
  - Erythema [Recovered/Resolved]
  - Mucosal erosion [Recovered/Resolved]
  - Pruritus generalised [Recovered/Resolved]

NARRATIVE: CASE EVENT DATE: 20000227
